FAERS Safety Report 11321300 (Version 1)
Quarter: 2015Q3

REPORT INFORMATION
  Report Type: Report from Study
  Country: US (occurrence: US)
  Receive Date: 20150729
  Receipt Date: 20150729
  Transmission Date: 20151125
  Serious: Yes (Other)
  Sender: FDA-Public Use
  Company Number: US-BAYER-2015-373656

PATIENT
  Age: 60 Year
  Sex: Male
  Weight: 99.77 kg

DRUGS (1)
  1. NEXAVAR [Suspect]
     Active Substance: SORAFENIB
     Indication: HEPATIC CANCER
     Dosage: 400 MG, BID
     Route: 048
     Dates: start: 20150628

REACTIONS (6)
  - Fatigue [None]
  - Lethargy [None]
  - Dizziness [None]
  - Nausea [None]
  - Mobility decreased [None]
  - Dizziness [None]

NARRATIVE: CASE EVENT DATE: 20150702
